FAERS Safety Report 10043341 (Version 1)
Quarter: 2014Q1

REPORT INFORMATION
  Report Type: Spontaneous
  Country: FR (occurrence: FR)
  Receive Date: 20140328
  Receipt Date: 20140328
  Transmission Date: 20141002
  Serious: Yes (Other)
  Sender: FDA-Public Use
  Company Number: FR-UCBSA-115668

PATIENT
  Age: 64 Year
  Sex: Female

DRUGS (1)
  1. NEUPRO [Suspect]
     Indication: PARKINSON^S DISEASE
     Dates: start: 20130319, end: 201311

REACTIONS (3)
  - Anxiety [Recovered/Resolved]
  - Weight increased [Recovered/Resolved]
  - Eating disorder [Recovered/Resolved]
